FAERS Safety Report 14419919 (Version 2)
Quarter: 2018Q2

REPORT INFORMATION
  Report Type: Spontaneous
  Country: ZA (occurrence: ZA)
  Receive Date: 20180122
  Receipt Date: 20180417
  Transmission Date: 20180711
  Serious: Yes (Hospitalization)
  Sender: FDA-Public Use
  Company Number: ZA-MYLANLABS-2018M1004735

PATIENT
  Age: 58 Year
  Sex: Female

DRUGS (6)
  1. IVEDAL [Concomitant]
     Active Substance: ZOLPIDEM TARTRATE
     Indication: INSOMNIA
     Dosage: 10 MG, UNK
     Route: 048
     Dates: end: 201711
  2. DOPAQUEL [Concomitant]
     Active Substance: QUETIAPINE
     Indication: PSYCHIATRIC SYMPTOM
     Dosage: 300 MG, UNK
     Route: 048
  3. ADCO-ZOLPIDEM [Concomitant]
     Active Substance: ZOLPIDEM TARTRATE
     Indication: INSOMNIA
     Dosage: 10 MG, UNK
     Route: 048
     Dates: start: 201801
  4. MYLAN PANTOPRAZOLE 40 MG [Suspect]
     Active Substance: PANTOPRAZOLE SODIUM
     Indication: GASTROOESOPHAGEAL REFLUX DISEASE
     Dosage: 40 MG, UNK
     Route: 048
     Dates: start: 201708
  5. BRAZEPAM [Concomitant]
     Active Substance: BROMAZEPAM
     Indication: ANXIETY
     Dosage: 6 MG, UNK
     Route: 048
  6. ELTROXIN [Concomitant]
     Active Substance: LEVOTHYROXINE
     Indication: HYPOTHYROIDISM
     Dosage: 150 ?G, UNK
     Route: 048

REACTIONS (2)
  - Lower limb fracture [Unknown]
  - Fall [Unknown]
